FAERS Safety Report 24790864 (Version 1)
Quarter: 2024Q4

REPORT INFORMATION
  Report Type: Spontaneous
  Country: CN (occurrence: CN)
  Receive Date: 20241230
  Receipt Date: 20241230
  Transmission Date: 20250114
  Serious: Yes (Hospitalization)
  Sender: NOVARTIS
  Company Number: CN-002147023-NVSC2024CN244841

PATIENT
  Age: 23 Year
  Sex: Female
  Weight: 43 kg

DRUGS (3)
  1. TEGRETOL [Suspect]
     Active Substance: CARBAMAZEPINE
     Indication: Epilepsy
     Dosage: 200 MG, BID
     Route: 048
     Dates: start: 20240923, end: 20241008
  2. VALPROATE SODIUM [Concomitant]
     Active Substance: VALPROATE SODIUM
     Indication: Epilepsy
     Dosage: 0.5 G, BID (SUSTAINED-RELEASE TABLETS (I))
     Route: 048
     Dates: start: 20240923, end: 20241008
  3. ZIPRASIDONE HYDROCHLORIDE [Concomitant]
     Active Substance: ZIPRASIDONE HYDROCHLORIDE
     Indication: Epilepsy
     Dosage: 10 MG, BID
     Route: 048
     Dates: start: 20240923, end: 20241008

REACTIONS (13)
  - Pharyngeal erythema [Unknown]
  - Pyrexia [Unknown]
  - Rash [Unknown]
  - Pharyngeal swelling [Unknown]
  - Conjunctival hyperaemia [Unknown]
  - Oedema [Unknown]
  - Tongue ulceration [Unknown]
  - Mouth ulceration [Unknown]
  - Eye discharge [Unknown]
  - Blister [Unknown]
  - Mucosal exfoliation [Unknown]
  - Effusion [Unknown]
  - Drug hypersensitivity [Unknown]

NARRATIVE: CASE EVENT DATE: 20241007
